FAERS Safety Report 5850836-5 (Version None)
Quarter: 2008Q3

REPORT INFORMATION
  Report Type: 
  Country: None (occurrence: None)
  Receive Date: 20080819
  Receipt Date: 20080819
  Transmission Date: 20090109
  Serious: Yes (Other)
  Sender: FDA-Public Use
  Company Number: None

PATIENT
  Age: 69 Year
  Sex: Female
  Weight: 79.3795 kg

DRUGS (2)
  1. AZITHROMYCIN [Suspect]
     Indication: BRONCHITIS
     Dosage: 6-PACK  ONE PILL PER DAY PO
     Route: 048
     Dates: start: 20080723, end: 20080726
  2. AZITHROMYCIN [Suspect]
     Indication: SINUSITIS
     Dosage: 6-PACK  ONE PILL PER DAY PO
     Route: 048
     Dates: start: 20080723, end: 20080726

REACTIONS (4)
  - ABDOMINAL PAIN UPPER [None]
  - MUSCLE ATROPHY [None]
  - MUSCLE SPASMS [None]
  - VISUAL IMPAIRMENT [None]
